FAERS Safety Report 6913490-7 (Version None)
Quarter: 2010Q3

REPORT INFORMATION
  Report Type: 
  Country: None (occurrence: None)
  Receive Date: 20100805
  Receipt Date: 20100805
  Transmission Date: 20110219
  Serious: Yes (Other)
  Sender: FDA-Public Use
  Company Number: None

PATIENT
  Age: 61 Year
  Sex: Female
  Weight: 92.0802 kg

DRUGS (1)
  1. TINEACIDE UNDECYLENIC ACID 13%  BLAINE LABS, INC [Suspect]
     Indication: ONYCHOMYCOSIS
     Dosage: APPLY SPARINGLY 2X DAY TOP
     Route: 061
     Dates: start: 20100730, end: 20100801

REACTIONS (3)
  - ARTHRALGIA [None]
  - DISCOMFORT [None]
  - MYALGIA [None]
